FAERS Safety Report 7357148-1 (Version None)
Quarter: 2011Q1

REPORT INFORMATION
  Report Type: 
  Country: None (occurrence: None)
  Receive Date: 20110311
  Receipt Date: 20110311
  Transmission Date: 20110831
  Serious: No
  Sender: FDA-Public Use
  Company Number: None

PATIENT
  Age: 60 Year
  Sex: Female

DRUGS (8)
  1. NORTRIPTYLINE [Concomitant]
  2. PROZAC [Concomitant]
  3. NEURONTIN [Concomitant]
  4. REVLIMID [Suspect]
     Indication: MULTIPLE MYELOMA
     Dosage: 15MG QD 21D/28D ORALLY
     Route: 048
  5. NORTRIPTYLINE [Concomitant]
  6. VICODIN [Concomitant]
  7. NEURONTIN [Concomitant]
  8. VITAMIN B-12 [Concomitant]

REACTIONS (1)
  - NEUROPATHY PERIPHERAL [None]
